FAERS Safety Report 8270366-3 (Version None)
Quarter: 2012Q2

REPORT INFORMATION
  Report Type: 
  Country: None (occurrence: None)
  Receive Date: 20120410
  Receipt Date: 20120402
  Transmission Date: 20120825
  Serious: No
  Sender: FDA-Public Use
  Company Number: US-BAYER-2012-033800

PATIENT
  Age: 79 Year
  Sex: Female
  Weight: 75 kg

DRUGS (7)
  1. FISH OIL [Concomitant]
  2. ASPIRIN [Concomitant]
  3. AMITRIPTYLINE HYDROCHLORIDE [Concomitant]
  4. VITAMINS NOS [Concomitant]
  5. MULTI-VITAMIN [Concomitant]
  6. ALEVE (CAPLET) [Suspect]
     Indication: ANALGESIC THERAPY
     Dosage: 1 U, PRN
     Route: 048
     Dates: start: 20120301, end: 20120330
  7. LORAZEPAM [Concomitant]

REACTIONS (1)
  - DIARRHOEA [None]
